FAERS Safety Report 7542931-X (Version None)
Quarter: 2011Q2

REPORT INFORMATION
  Report Type: 
  Country: None (occurrence: None)
  Receive Date: 20110524
  Receipt Date: 20110203
  Transmission Date: 20111010
  Serious: No
  Sender: FDA-Public Use
  Company Number: 024887

PATIENT
  Sex: Female
  Weight: 61.7 kg

DRUGS (22)
  1. SINGULAIR [Concomitant]
  2. ULTRAM [Concomitant]
  3. MAGNESIUM OXIDE [Concomitant]
  4. ALLOPURINOL [Concomitant]
  5. LYRICA [Concomitant]
  6. HYZAAR /01284801/ [Concomitant]
  7. CIMZIA [Suspect]
     Indication: CROHN'S DISEASE
     Dosage: (400 MG 1X/4 WEEKS, ROUTE: SUBCUTANEOUS ABD SUBCUTANEOUS)
     Route: 058
     Dates: start: 20100910, end: 20101231
  8. CYMBALTA [Concomitant]
  9. GEMFIBROZIL [Concomitant]
  10. DEXLANSOPRAZOLE [Concomitant]
  11. MOBIC [Concomitant]
  12. VITAMIN B-12 [Concomitant]
  13. FOLIC ACID [Concomitant]
  14. VITAMIN D [Concomitant]
  15. POTASSIUM CITRATE [Concomitant]
  16. PROAIR HFA [Concomitant]
  17. AVELOX /01453201/ [Concomitant]
  18. PRAMIPEXOLE DIHYDROCHLORIDE [Concomitant]
  19. OMEGA-3 /01168901 [Concomitant]
  20. HYDROXYZINE [Concomitant]
  21. ABILIFY [Concomitant]
  22. ZINC [Concomitant]

REACTIONS (11)
  - BACTERIAL INFECTION [None]
  - DIARRHOEA [None]
  - SWELLING [None]
  - UNEVALUABLE EVENT [None]
  - NASOPHARYNGITIS [None]
  - ARTHRALGIA [None]
  - ABDOMINAL PAIN [None]
  - PYREXIA [None]
  - GASTROOESOPHAGEAL REFLUX DISEASE [None]
  - RHINORRHOEA [None]
  - CONSTIPATION [None]
